FAERS Safety Report 6582141-6 (Version None)
Quarter: 2010Q1

REPORT INFORMATION
  Report Type: 
  Country: None (occurrence: None)
  Receive Date: 20100212
  Receipt Date: 20100212
  Transmission Date: 20100710
  Serious: Yes (Other)
  Sender: FDA-Public Use
  Company Number: None

PATIENT
  Sex: Female
  Weight: 68.0396 kg

DRUGS (4)
  1. ALTACE [Suspect]
     Indication: ALOPECIA
     Dosage: 10MG - TWICE A DAY ORAL FOUR YEARS APPROX
     Route: 048
  2. ALTACE [Suspect]
     Indication: SKIN INFECTION
     Dosage: 10MG - TWICE A DAY ORAL FOUR YEARS APPROX
     Route: 048
  3. MICARDIS [Suspect]
     Indication: ALOPECIA
     Dosage: 80MG. ONCE A DAY FOUR YEARS APPROX.
  4. MICARDIS [Suspect]
     Indication: SKIN INFECTION
     Dosage: 80MG. ONCE A DAY FOUR YEARS APPROX.

REACTIONS (6)
  - ALOPECIA [None]
  - EYE SWELLING [None]
  - OEDEMA MOUTH [None]
  - PRURITUS [None]
  - RASH [None]
  - SKIN INFECTION [None]
